FAERS Safety Report 26214094 (Version 1)
Quarter: 2025Q4

REPORT INFORMATION
  Report Type: Spontaneous
  Country: EU (occurrence: EU)
  Receive Date: 20251230
  Receipt Date: 20251230
  Transmission Date: 20260118
  Serious: Yes (Death)
  Sender: AMGEN
  Company Number: EU-AMGEN-ESPSP2025256004

PATIENT

DRUGS (1)
  1. BLINATUMOMAB [Suspect]
     Active Substance: BLINATUMOMAB
     Indication: B-cell type acute leukaemia
     Dosage: UNK
     Route: 065

REACTIONS (3)
  - B-cell type acute leukaemia [Fatal]
  - Venoocclusive disease [Fatal]
  - Neutropenic sepsis [Fatal]
